FAERS Safety Report 15853332 (Version 2)
Quarter: 2019Q1

REPORT INFORMATION
  Report Type: Spontaneous
  Country: US (occurrence: US)
  Receive Date: 20190122
  Receipt Date: 20190212
  Transmission Date: 20190417
  Serious: Yes (Hospitalization)
  Sender: FDA-Public Use
  Company Number: US-CELGENEUS-USA-20190106310

PATIENT
  Age: 70 Year
  Sex: Female
  Weight: 71.3 kg

DRUGS (19)
  1. ABRAXANE [Suspect]
     Active Substance: PACLITAXEL
     Indication: ADENOCARCINOMA PANCREAS
     Dosage: 125 MILLIGRAM/SQ. METER
     Route: 065
     Dates: start: 20181105, end: 20181105
  2. MEDI4736 (DURVALUMAB) [Suspect]
     Active Substance: DURVALUMAB
     Indication: ADENOCARCINOMA PANCREAS
     Dosage: 1500 MILLIGRAM
     Route: 042
     Dates: start: 20181105, end: 20181105
  3. MEDI4736 (DURVALUMAB) [Suspect]
     Active Substance: DURVALUMAB
     Indication: ADENOCARCINOMA PANCREAS
     Dosage: 1500 MILLIGRAM
     Route: 042
     Dates: start: 20190102, end: 20190102
  4. OLECLUMAB. [Suspect]
     Active Substance: OLECLUMAB
     Indication: ADENOCARCINOMA PANCREAS
     Dosage: 3000 MILLIGRAM
     Route: 042
     Dates: start: 20181119, end: 20181119
  5. ABRAXANE [Suspect]
     Active Substance: PACLITAXEL
     Dosage: 100 MILLIGRAM/SQ. METER
     Route: 065
     Dates: start: 20181210, end: 20181210
  6. GEMCITABINE [Suspect]
     Active Substance: GEMCITABINE\GEMCITABINE HYDROCHLORIDE
     Indication: ADENOCARCINOMA PANCREAS
     Dosage: 1000 MILLIGRAM/SQ. METER
     Route: 065
     Dates: start: 20181112, end: 20181112
  7. MEDI4736 (DURVALUMAB) [Suspect]
     Active Substance: DURVALUMAB
     Indication: ADENOCARCINOMA PANCREAS
     Dosage: 1500 MILLIGRAM/MILLILITERS
     Route: 042
     Dates: start: 20181203, end: 20181203
  8. GEMCITABINE [Suspect]
     Active Substance: GEMCITABINE\GEMCITABINE HYDROCHLORIDE
     Indication: ADENOCARCINOMA PANCREAS
     Dosage: 1000 MILLIGRAM/SQ. METER
     Route: 065
     Dates: start: 20181203, end: 20181203
  9. GEMCITABINE [Suspect]
     Active Substance: GEMCITABINE\GEMCITABINE HYDROCHLORIDE
     Indication: ADENOCARCINOMA PANCREAS
     Dosage: 1000 MILLIGRAM/SQ. METER
     Route: 065
     Dates: start: 20181210, end: 20181210
  10. OLECLUMAB. [Suspect]
     Active Substance: OLECLUMAB
     Indication: ADENOCARCINOMA PANCREAS
     Dosage: 3000 MILLIGRAM
     Route: 042
     Dates: start: 20190102, end: 20190102
  11. ABRAXANE [Suspect]
     Active Substance: PACLITAXEL
     Dosage: 75 MILLIGRAM/SQ. METER
     Route: 065
     Dates: start: 20190102, end: 20190102
  12. GEMCITABINE [Suspect]
     Active Substance: GEMCITABINE\GEMCITABINE HYDROCHLORIDE
     Indication: ADENOCARCINOMA PANCREAS
     Dosage: 1000 MILLIGRAM/SQ. METER
     Route: 065
     Dates: start: 20181105, end: 20181105
  13. ABRAXANE [Suspect]
     Active Substance: PACLITAXEL
     Dosage: 125 MILLIGRAM/SQ. METER
     Route: 065
     Dates: start: 20181112, end: 20181112
  14. ABRAXANE [Suspect]
     Active Substance: PACLITAXEL
     Dosage: 180000 MILLIGRAM/SQ. METER
     Route: 065
     Dates: start: 20181119, end: 20181119
  15. OLECLUMAB. [Suspect]
     Active Substance: OLECLUMAB
     Indication: ADENOCARCINOMA PANCREAS
     Dosage: 3000 MILLIGRAM
     Route: 042
     Dates: start: 20181105, end: 20181105
  16. GEMCITABINE [Suspect]
     Active Substance: GEMCITABINE\GEMCITABINE HYDROCHLORIDE
     Indication: ADENOCARCINOMA PANCREAS
     Dosage: 1000 MILLIGRAM/SQ. METER
     Route: 065
     Dates: start: 20181119, end: 20181119
  17. ABRAXANE [Suspect]
     Active Substance: PACLITAXEL
     Dosage: 100 MILLIGRAM/SQ. METER
     Route: 065
     Dates: start: 20181203, end: 20181203
  18. GEMCITABINE [Suspect]
     Active Substance: GEMCITABINE\GEMCITABINE HYDROCHLORIDE
     Indication: ADENOCARCINOMA PANCREAS
     Dosage: 1000 MILLIGRAM/SQ. METER
     Route: 065
     Dates: start: 20190102, end: 20190102
  19. OLECLUMAB. [Suspect]
     Active Substance: OLECLUMAB
     Indication: ADENOCARCINOMA PANCREAS
     Dosage: 3000 MILLIGRAM
     Route: 042
     Dates: start: 20181203, end: 20181203

REACTIONS (1)
  - Peritonitis bacterial [Recovered/Resolved]

NARRATIVE: CASE EVENT DATE: 20190105
